FAERS Safety Report 12556284 (Version 1)
Quarter: 2016Q3

REPORT INFORMATION
  Report Type: Spontaneous
  Country: CN (occurrence: CN)
  Receive Date: 20160714
  Receipt Date: 20160714
  Transmission Date: 20161109
  Serious: Yes (Hospitalization)
  Sender: FDA-Public Use
  Company Number: CN-BAYER-2016-132842

PATIENT
  Age: 76 Year
  Sex: Male
  Weight: 70 kg

DRUGS (3)
  1. BAYASPIRIN [Suspect]
     Active Substance: ASPIRIN
     Indication: ISCHAEMIC HEART DISEASE PROPHYLAXIS
     Dosage: 0.1 G, QD
     Route: 048
     Dates: start: 20160210, end: 20160211
  2. HEPARIN CALCIUM [Suspect]
     Active Substance: HEPARIN CALCIUM
     Indication: ISCHAEMIC HEART DISEASE PROPHYLAXIS
     Dosage: 4000 IU, BID
     Route: 058
     Dates: start: 20160210, end: 20160211
  3. CLOPIDOGREL SULFATE [Suspect]
     Active Substance: CLOPIDOGREL BISULFATE
     Indication: ISCHAEMIC HEART DISEASE PROPHYLAXIS
     Dosage: 75 MG, QD
     Route: 048
     Dates: start: 20160210, end: 20160211

REACTIONS (3)
  - Haematochezia [Recovering/Resolving]
  - Haemoptysis [Recovering/Resolving]
  - Platelet count decreased [Recovering/Resolving]

NARRATIVE: CASE EVENT DATE: 20160211
